FAERS Safety Report 24086094 (Version 1)
Quarter: 2024Q3

REPORT INFORMATION
  Report Type: Report from Study
  Country: US (occurrence: US)
  Receive Date: 20240712
  Receipt Date: 20240712
  Transmission Date: 20241017
  Serious: Yes (Other)
  Sender: TAKEDA
  Company Number: US-TAKEDA-2024TUS070707

PATIENT
  Sex: Female

DRUGS (1)
  1. VEDOLIZUMAB [Suspect]
     Active Substance: VEDOLIZUMAB
     Indication: Crohn^s disease
     Dosage: 300 MILLIGRAM
     Route: 042

REACTIONS (3)
  - Crohn^s disease [Not Recovered/Not Resolved]
  - Psoriasis [Not Recovered/Not Resolved]
  - Poor venous access [Not Recovered/Not Resolved]
